FAERS Safety Report 6053066-X (Version None)
Quarter: 2009Q1

REPORT INFORMATION
  Report Type: 
  Country: None (occurrence: None)
  Receive Date: 20090127
  Receipt Date: 20090121
  Transmission Date: 20090719
  Serious: Yes (Other)
  Sender: FDA-Public Use
  Company Number: DE-BRISTOL-MYERS SQUIBB COMPANY-14478879

PATIENT
  Age: 27 Year
  Sex: Male
  Weight: 80 kg

DRUGS (1)
  1. ABILIFY [Suspect]
     Dosage: DOSAGE FORM=ARIPIPRAZOLE 10 MG TABLETS,TOTAL DOSE=70MG
     Route: 048
     Dates: start: 20090121, end: 20090121

REACTIONS (2)
  - DIZZINESS [None]
  - DRUG ABUSE [None]
